FAERS Safety Report 4579254-7 (Version None)
Quarter: 2005Q1

REPORT INFORMATION
  Report Type: 
  Country: None (occurrence: None)
  Receive Date: 20050210
  Receipt Date: 20050210
  Transmission Date: 20050727
  Serious: Yes (Other)
  Sender: FDA-Public Use
  Company Number: None

PATIENT
  Sex: Female
  Weight: 63.6 kg

DRUGS (3)
  1. ATRA [Suspect]
     Dosage: 45 MG/M2 PO (DAY 1 TO CR)
     Route: 048
     Dates: start: 20041213
  2. CYTARABINE [Suspect]
     Dosage: 200 MG /M2 IV X 7 DAYS (DAY 3-DAY 9)
     Route: 042
  3. DAUNORUBICIN HCL [Suspect]

REACTIONS (12)
  - ARRHYTHMIA [None]
  - CHEST PAIN [None]
  - DEEP VEIN THROMBOSIS [None]
  - HYPOTENSION [None]
  - ISCHAEMIC HEPATITIS [None]
  - LOBAR PNEUMONIA [None]
  - OLIGURIA [None]
  - RENAL FAILURE [None]
  - RENAL TUBULAR NECROSIS [None]
  - RESPIRATORY DISTRESS [None]
  - SEPSIS [None]
  - VENTRICULAR TACHYCARDIA [None]
